FAERS Safety Report 6401952-0 (Version None)
Quarter: 2009Q4

REPORT INFORMATION
  Report Type: 
  Country: None (occurrence: None)
  Receive Date: 20091015
  Receipt Date: 20091014
  Transmission Date: 20100525
  Serious: Yes (Other)
  Sender: FDA-Public Use
  Company Number: A0811837A

PATIENT
  Sex: Female

DRUGS (4)
  1. LOVAZA [Suspect]
     Indication: PROPHYLAXIS
     Dosage: 1G PER DAY
     Route: 048
  2. SYNTHROID [Concomitant]
     Dosage: .025MCG PER DAY
  3. CRESTOR [Concomitant]
     Dosage: 25MGD PER DAY
  4. VITAMIN D3 [Concomitant]
     Dosage: 1800IU PER DAY

REACTIONS (1)
  - VENTRICULAR TACHYCARDIA [None]
